FAERS Safety Report 12659266 (Version 2)
Quarter: 2016Q3

REPORT INFORMATION
  Report Type: Spontaneous
  Country: TR (occurrence: TR)
  Receive Date: 20160817
  Receipt Date: 20160825
  Transmission Date: 20161109
  Serious: Yes (Death)
  Sender: FDA-Public Use
  Company Number: PHHY2016TR112327

PATIENT
  Age: 65 Year
  Sex: Male

DRUGS (2)
  1. DELTA-CORTRIL [Concomitant]
     Indication: PRODUCT USED FOR UNKNOWN INDICATION
     Route: 065
  2. SANDOSTATIN LAR DEPOT [Suspect]
     Active Substance: OCTREOTIDE ACETATE
     Indication: ACROMEGALY
     Dosage: 20 MG, QMO ( ONCE IN 28 DAYS) FOR 5 YEARS
     Route: 065

REACTIONS (2)
  - Respiratory distress [Fatal]
  - Acromegaly [Fatal]
